FAERS Safety Report 5624685-7 (Version None)
Quarter: 2008Q1

REPORT INFORMATION
  Report Type: 
  Country: None (occurrence: None)
  Receive Date: 20080213
  Receipt Date: 20080205
  Transmission Date: 20080703
  Serious: Yes (Other)
  Sender: FDA-Public Use
  Company Number: B0451744A

PATIENT
  Age: 39 Year
  Sex: Male
  Weight: 75 kg

DRUGS (6)
  1. PAXIL [Suspect]
     Indication: DEPRESSION
     Route: 048
     Dates: start: 20060925, end: 20070905
  2. NAUZELIN [Concomitant]
     Indication: NAUSEA
     Dosage: 30MG PER DAY
     Route: 048
     Dates: start: 20060925
  3. GASTER D [Concomitant]
     Indication: GASTRITIS
     Dosage: 20MG PER DAY
     Route: 048
     Dates: start: 20060925, end: 20070416
  4. WYPAX [Concomitant]
     Indication: PANIC DISORDER
     Dosage: 3MG PER DAY
     Route: 048
     Dates: start: 20060925
  5. MUCOSTA [Concomitant]
     Dosage: 300MG PER DAY
     Route: 048
     Dates: start: 20070925
  6. SG [Concomitant]
     Route: 048
     Dates: start: 20070925

REACTIONS (12)
  - ALANINE AMINOTRANSFERASE INCREASED [None]
  - ASPARTATE AMINOTRANSFERASE INCREASED [None]
  - BLOOD CHOLESTEROL INCREASED [None]
  - BLOOD TRIGLYCERIDES INCREASED [None]
  - BLOOD URIC ACID INCREASED [None]
  - EJACULATION DISORDER [None]
  - GAMMA-GLUTAMYLTRANSFERASE INCREASED [None]
  - HEPATIC FUNCTION ABNORMAL [None]
  - HYPERLIPIDAEMIA [None]
  - HYPERURICAEMIA [None]
  - INCREASED APPETITE [None]
  - WEIGHT INCREASED [None]
